FAERS Safety Report 24710611 (Version 1)
Quarter: 2024Q4

REPORT INFORMATION
  Report Type: Report from Study
  Country: US (occurrence: US)
  Receive Date: 20241209
  Receipt Date: 20241209
  Transmission Date: 20250114
  Serious: Yes (Hospitalization)
  Sender: RECORDATI
  Company Number: US-SAMOHPHARM-2022001107

PATIENT

DRUGS (6)
  1. CYSTADANE [Suspect]
     Active Substance: BETAINE
     Indication: Homocystinuria
     Dosage: 5 GRAM, TID
     Route: 048
     Dates: start: 20150622, end: 20220206
  2. CYSTADANE [Suspect]
     Active Substance: BETAINE
     Dosage: 3 GRAM, BID
     Route: 048
     Dates: start: 20220207
  3. XARELTO [Concomitant]
     Active Substance: RIVAROXABAN
     Indication: Thrombosis
  4. SYMBICORT [Concomitant]
     Active Substance: BUDESONIDE\FORMOTEROL FUMARATE DIHYDRATE
     Indication: Asthma
  5. ALBUTEROL [Concomitant]
     Active Substance: ALBUTEROL
     Indication: Asthma
  6. ATORVASTATIN [Concomitant]
     Active Substance: ATORVASTATIN
     Indication: Blood cholesterol increased

REACTIONS (5)
  - Hypoaesthesia [Recovered/Resolved]
  - Migraine [Recovered/Resolved]
  - Blood homocysteine abnormal [Unknown]
  - Product use issue [Recovered/Resolved]
  - Overdose [Recovered/Resolved]

NARRATIVE: CASE EVENT DATE: 20150622
